FAERS Safety Report 6044724-1 (Version None)
Quarter: 2009Q1

REPORT INFORMATION
  Report Type: 
  Country: None (occurrence: None)
  Receive Date: 20090120
  Receipt Date: 20090120
  Transmission Date: 20090719
  Serious: Yes (Other)
  Sender: FDA-Public Use
  Company Number: US-ROXANE LABORATORIES, INC.-2009-RO-00089RO

PATIENT

DRUGS (2)
  1. LITHIUM CARBONATE [Suspect]
  2. ACEI [Suspect]

REACTIONS (1)
  - RENAL FAILURE [None]
